FAERS Safety Report 23966098 (Version 1)
Quarter: 2024Q2

REPORT INFORMATION
  Report Type: Other
  Country: US (occurrence: None)
  Receive Date: 20240612
  Receipt Date: 20240612
  Transmission Date: 20240716
  Serious: Yes (Other)
  Sender: FDA-Public Use
  Company Number: US-ROCHE-3579954

PATIENT

DRUGS (2)
  1. XOLAIR [Suspect]
     Active Substance: OMALIZUMAB
     Indication: Product used for unknown indication
     Route: 065
  2. PREDNISONE [Suspect]
     Active Substance: PREDNISONE
     Indication: Product used for unknown indication
     Route: 065

REACTIONS (9)
  - Thyroid cancer [Unknown]
  - Thyroid pain [Unknown]
  - Pruritus [Unknown]
  - Fatigue [Unknown]
  - Lymphadenopathy [Unknown]
  - Flushing [Unknown]
  - Infectious mononucleosis [Unknown]
  - Erythema [Unknown]
  - Rash macular [Unknown]
